FAERS Safety Report 23341613 (Version 2)
Quarter: 2024Q3

REPORT INFORMATION
  Report Type: Spontaneous
  Country: US (occurrence: US)
  Receive Date: 20231227
  Receipt Date: 20240722
  Transmission Date: 20241017
  Serious: Yes (Hospitalization)
  Sender: PERRIGO
  Company Number: US-PERRIGO-23US014673

PATIENT
  Sex: Female
  Weight: 71.655 kg

DRUGS (18)
  1. POLYETHYLENE GLYCOL 3350 [Suspect]
     Active Substance: POLYETHYLENE GLYCOL 3350
     Indication: Constipation
     Dosage: 17 G, QHS
     Route: 048
     Dates: start: 20230203, end: 202311
  2. POLYETHYLENE GLYCOL 3350 [Suspect]
     Active Substance: POLYETHYLENE GLYCOL 3350
     Dosage: 17 G, QHS
     Route: 048
     Dates: start: 20231217, end: 20231217
  3. POLYETHYLENE GLYCOL 3350 [Suspect]
     Active Substance: POLYETHYLENE GLYCOL 3350
     Dosage: 2 TABLESPOONS, HS ON 3 SEPARATE OCCASIONS
     Route: 048
     Dates: start: 2016, end: 2017
  4. AMLODIPINE [Suspect]
     Active Substance: AMLODIPINE BESYLATE
     Indication: Hypertension
     Dosage: 2.5 MG, QD
     Route: 048
     Dates: start: 20231129, end: 20231213
  5. VALSARTAN [Suspect]
     Active Substance: VALSARTAN
     Indication: Hypertension
     Dosage: 160 MG, QD
     Route: 048
     Dates: start: 202311, end: 20231128
  6. OLMESARTAN MEDOXOMIL [Suspect]
     Active Substance: OLMESARTAN MEDOXOMIL
     Indication: Hypertension
     Dosage: 20 MG, BID
     Route: 048
     Dates: start: 202309, end: 202311
  7. LOSARTAN [Suspect]
     Active Substance: LOSARTAN
     Indication: Hypertension
     Dosage: 50 MG, QD
     Route: 048
     Dates: start: 202302, end: 202310
  8. LOSARTAN [Suspect]
     Active Substance: LOSARTAN
     Dosage: 25 MG, QD
     Route: 048
     Dates: start: 202310, end: 202311
  9. METFORMIN [Suspect]
     Active Substance: METFORMIN HYDROCHLORIDE
     Indication: Type 2 diabetes mellitus
     Dosage: 500 MG, BID
     Route: 048
     Dates: start: 202307
  10. METFORMIN [Suspect]
     Active Substance: METFORMIN HYDROCHLORIDE
     Dosage: 1000 MG, BID
     Route: 048
     Dates: start: 2006, end: 202307
  11. FARXIGA [Concomitant]
     Active Substance: DAPAGLIFLOZIN PROPANEDIOL
     Indication: Product used for unknown indication
     Dosage: 5 MG, QAM
     Route: 048
  12. TOPROL XL [Concomitant]
     Active Substance: METOPROLOL SUCCINATE
     Indication: Hypertension
     Dosage: 25 MG, QAM
     Route: 048
     Dates: start: 202302
  13. PLAVIX [Concomitant]
     Active Substance: CLOPIDOGREL BISULFATE
     Indication: Anticoagulant therapy
     Dosage: 75 MG, QD
     Route: 048
     Dates: start: 20230203
  14. LORAZEPAM [Concomitant]
     Active Substance: LORAZEPAM
     Indication: Anxiety
     Dosage: 0.5 MG, BID PRN
     Route: 048
     Dates: start: 202308
  15. BENZTROPINE [Concomitant]
     Active Substance: BENZTROPINE
     Indication: Extrapyramidal disorder
     Dosage: 0.5 MG, QD
     Route: 048
     Dates: start: 202309
  16. THIOTHIXENE HYDROCHLORIDE [Concomitant]
     Active Substance: THIOTHIXENE HYDROCHLORIDE
     Indication: Schizophrenia
     Dosage: 4 MG, QHS
     Route: 048
     Dates: start: 20231214
  17. THIOTHIXENE HYDROCHLORIDE [Concomitant]
     Active Substance: THIOTHIXENE HYDROCHLORIDE
     Dosage: 2 MG, QHS
     Route: 048
     Dates: start: 202310, end: 20231213
  18. ALUMINUM HYDROXIDE\DIMETHICONE\MAGNESIUM HYDROXIDE [Concomitant]
     Active Substance: ALUMINUM HYDROXIDE\DIMETHICONE\MAGNESIUM HYDROXIDE
     Indication: Product used for unknown indication
     Dosage: 20 ML, ONCE
     Route: 048
     Dates: start: 20231214, end: 20231214

REACTIONS (12)
  - Pulmonary oedema [Unknown]
  - Neuropathy peripheral [Recovering/Resolving]
  - Brain fog [Recovered/Resolved]
  - Electric shock sensation [Recovering/Resolving]
  - Tinnitus [Recovering/Resolving]
  - Ear haemorrhage [Recovered/Resolved]
  - Epistaxis [Recovered/Resolved]
  - Intestinal barrier dysfunction [Not Recovered/Not Resolved]
  - Haematochezia [Recovering/Resolving]
  - Faeces discoloured [Not Recovered/Not Resolved]
  - Incorrect product administration duration [Recovered/Resolved]
  - Incorrect dose administered [Recovered/Resolved]

NARRATIVE: CASE EVENT DATE: 20160101
